FAERS Safety Report 16370393 (Version 1)
Quarter: 2019Q2

REPORT INFORMATION
  Report Type: Spontaneous
  Country: US (occurrence: US)
  Receive Date: 20190423
  Receipt Date: 20190423
  Transmission Date: 20190711
  Serious: No
  Sender: FDA-Public Use
  Company Number: None

PATIENT

DRUGS (1)
  1. LEUPROLIDE [Suspect]
     Active Substance: LEUPROLIDE
     Indication: PROSTATOMEGALY
     Dosage: ?          OTHER ROUTE:INJECTION?
     Dates: start: 20190312

REACTIONS (5)
  - Penile pain [None]
  - Penile burning sensation [None]
  - Nephrolithiasis [None]
  - Bladder pain [None]
  - Drug ineffective [None]

NARRATIVE: CASE EVENT DATE: 20190404
